FAERS Safety Report 8619450-2 (Version None)
Quarter: 2012Q3

REPORT INFORMATION
  Report Type: 
  Country: None (occurrence: None)
  Receive Date: 20120824
  Receipt Date: 20120710
  Transmission Date: 20120928
  Serious: Yes (Hospitalization, Disabling, Other)
  Sender: FDA-Public Use
  Company Number: US-MERCK SHARP & DOHME D.O.O.-1203USA03426

PATIENT

DRUGS (10)
  1. FOSAMAX [Suspect]
  2. FOSAMAX [Suspect]
     Dosage: 70 MG, QW
     Route: 048
     Dates: end: 20060701
  3. FOSAMAX [Suspect]
  4. FOSAMAX [Suspect]
     Dosage: 70  MG, QW
     Route: 048
     Dates: start: 20010621, end: 20030103
  5. FOSAMAX [Suspect]
     Dosage: 70 MG, UNK
     Route: 048
     Dates: end: 20030918
  6. FOSAMAX [Suspect]
     Indication: OSTEOPOROSIS
     Dosage: 10  MG, UNK
     Route: 048
     Dates: start: 19970701
  7. BONIVA [Suspect]
     Dosage: 150  MG, UNK
     Route: 048
     Dates: start: 20060606, end: 20090601
  8. FOSAMAX [Suspect]
     Dosage: 70 MG, UNK
     Route: 048
     Dates: start: 20091020, end: 20100703
  9. BONIVA [Suspect]
     Indication: OSTEOPOROSIS
  10. FOSAMAX [Suspect]
     Route: 048
     Dates: start: 19950101

REACTIONS (29)
  - DEPRESSION [None]
  - ANXIETY [None]
  - SCHIZOPHRENIA [None]
  - MENORRHAGIA [None]
  - POOR QUALITY SLEEP [None]
  - CARDIOMEGALY [None]
  - UTERINE DISORDER [None]
  - ENDOMETRIAL DISORDER [None]
  - WEIGHT DECREASED [None]
  - OSTEOPOROSIS [None]
  - BLOOD CHOLESTEROL INCREASED [None]
  - BLADDER TRANSITIONAL CELL CARCINOMA [None]
  - STRESS URINARY INCONTINENCE [None]
  - NEPHROLITHIASIS [None]
  - MULTIPLE FRACTURES [None]
  - BALANCE DISORDER [None]
  - SYNOVIAL CYST [None]
  - DYSPHAGIA [None]
  - BONE DENSITY DECREASED [None]
  - BLADDER FIBROSIS [None]
  - BREAST CALCIFICATIONS [None]
  - FEMUR FRACTURE [None]
  - FALL [None]
  - ROTATOR CUFF SYNDROME [None]
  - CONSTIPATION [None]
  - TOOTH DISORDER [None]
  - VITAMIN D DEFICIENCY [None]
  - ARTHROPATHY [None]
  - ARTHRALGIA [None]
